FAERS Safety Report 5969160-5 (Version None)
Quarter: 2008Q4

REPORT INFORMATION
  Report Type: 
  Country: None (occurrence: None)
  Receive Date: 20081126
  Receipt Date: 20081117
  Transmission Date: 20090506
  Serious: Yes (Other)
  Sender: FDA-Public Use
  Company Number: US-WATSON-2008-06799

PATIENT
  Age: 54 Year
  Sex: Male

DRUGS (1)
  1. COLCHICINE (WATSON LABORATORIES) [Suspect]
     Indication: GOUT
     Dosage: 0.6 MG, DAILY X } 10 YEARS
     Route: 048

REACTIONS (1)
  - LIVER INJURY [None]
